FAERS Safety Report 7592834-X (Version None)
Quarter: 2011Q3

REPORT INFORMATION
  Report Type: 
  Country: None (occurrence: None)
  Receive Date: 20110706
  Receipt Date: 20110702
  Transmission Date: 20111222
  Serious: No
  Sender: FDA-Public Use
  Company Number: US-PFIZER INC-2011148107

PATIENT
  Sex: Female
  Weight: 76.2 kg

DRUGS (4)
  1. MULTI-VITAMINS [Concomitant]
     Dosage: UNK, 1X/DAY
  2. VISTARIL [Concomitant]
     Dosage: UNK
  3. LOVASTATIN [Concomitant]
     Dosage: UNK
  4. PRISTIQ [Suspect]
     Indication: HOT FLUSH
     Dosage: 50 MG, 1X/DAY
     Route: 048
     Dates: start: 20110625

REACTIONS (1)
  - DIZZINESS [None]
